FAERS Safety Report 21118689 (Version 1)
Quarter: 2022Q3

REPORT INFORMATION
  Report Type: Spontaneous
  Country: CN (occurrence: None)
  Receive Date: 20220722
  Receipt Date: 20220722
  Transmission Date: 20221026
  Serious: Yes (Other)
  Sender: FDA-Public Use
  Company Number: CN-ROCHE-3140752

PATIENT
  Age: 71 Year
  Sex: Male

DRUGS (5)
  1. TECENTRIQ [Suspect]
     Active Substance: ATEZOLIZUMAB
     Indication: Hepatocellular carcinoma
     Dosage: TREATMENT WITH T+A ON 26/NOV/2021, 24/DEC/2021, 14/FEB/2022, 14/MAR/2022, 21/APR/2022
     Route: 065
     Dates: start: 20211030
  2. AVASTIN [Suspect]
     Active Substance: BEVACIZUMAB
     Indication: Hepatocellular carcinoma
     Dosage: TREATMENT WITH T+A ON 26/NOV/2021, 24/DEC/2021, 14/FEB/2022, 14/MAR/2022, 21/APR/2022
     Route: 065
     Dates: start: 20211030
  3. OXALIPLATIN [Concomitant]
     Active Substance: OXALIPLATIN
     Indication: Hepatocellular carcinoma
     Dosage: TREATMENT WITH (MFOLFOX6) ON 26/OCT/2021, 23/NOV/2021, 20/DEC/2021, 10/FEB/2022
  4. LEUCOVORIN CALCIUM [Concomitant]
     Active Substance: LEUCOVORIN CALCIUM
     Indication: Hepatocellular carcinoma
     Dosage: TREATMENT WITH (MFOLFOX6) ON 26/OCT/2021, 23/NOV/2021, 20/DEC/2021, 10/FEB/2022
  5. FLUOROURACIL [Concomitant]
     Active Substance: FLUOROURACIL
     Indication: Hepatocellular carcinoma
     Dosage: TREATMENT WITH (MFOLFOX6) ON 26/OCT/2021, 23/NOV/2021, 20/DEC/2021, 10/FEB/2022

REACTIONS (6)
  - Decreased appetite [Unknown]
  - Vomiting [Unknown]
  - Muscular weakness [Unknown]
  - Temperature intolerance [Unknown]
  - Tremor [Unknown]
  - Depressed level of consciousness [Unknown]

NARRATIVE: CASE EVENT DATE: 20220505
